FAERS Safety Report 6180496-8 (Version None)
Quarter: 2009Q2

REPORT INFORMATION
  Report Type: 
  Country: None (occurrence: None)
  Receive Date: 20090504
  Receipt Date: 20090504
  Transmission Date: 20091009
  Serious: No
  Sender: FDA-Public Use
  Company Number: None

PATIENT
  Age: 71 Year
  Sex: Female
  Weight: 86.1834 kg

DRUGS (1)
  1. METHOCARBAMOL [Suspect]
     Indication: SCIATICA
     Dosage: ONE TABLET 3 TIMES A DAY
     Dates: start: 20090315, end: 20090429

REACTIONS (4)
  - CHEST DISCOMFORT [None]
  - EYE HAEMORRHAGE [None]
  - HEART RATE INCREASED [None]
  - INAPPROPRIATE SCHEDULE OF DRUG ADMINISTRATION [None]
